FAERS Safety Report 5512419-6 (Version None)
Quarter: 2007Q4

REPORT INFORMATION
  Report Type: 
  Country: None (occurrence: None)
  Receive Date: 20071112
  Receipt Date: 20061020
  Transmission Date: 20080405
  Serious: No
  Sender: FDA-Public Use
  Company Number: A0623257A

PATIENT
  Age: 59 Year
  Sex: Male
  Weight: 79.5 kg

DRUGS (4)
  1. AVANDAMET [Suspect]
     Dosage: 1TAB TWICE PER DAY
     Route: 048
     Dates: start: 20061005
  2. BENICAR [Concomitant]
     Route: 048
     Dates: start: 20040101
  3. STATINS [Concomitant]
  4. LIPITOR [Concomitant]
     Route: 048
     Dates: start: 20040101

REACTIONS (3)
  - FLUID RETENTION [None]
  - OEDEMA [None]
  - WEIGHT INCREASED [None]
